FAERS Safety Report 15017558 (Version 10)
Quarter: 2020Q1

REPORT INFORMATION
  Report Type: Spontaneous
  Country: CA (occurrence: CA)
  Receive Date: 20180615
  Receipt Date: 20200117
  Transmission Date: 20200409
  Serious: Yes (Hospitalization, Other)
  Sender: FDA-Public Use
  Company Number: CA-CELLTRION INC.-2017CA005559

PATIENT

DRUGS (22)
  1. INFLECTRA [Suspect]
     Active Substance: INFLIXIMAB-DYYB
     Dosage: 700 MG, EVERY 0, 6 WEEKS, THEN EVERY 8 WEEKS
     Route: 042
     Dates: start: 20180802
  2. INFLECTRA [Suspect]
     Active Substance: INFLIXIMAB-DYYB
     Dosage: 700 MG, EVERY 0, 6 WEEKS, THEN EVERY 8 WEEKS
     Route: 042
     Dates: start: 20200107
  3. INFLECTRA [Suspect]
     Active Substance: INFLIXIMAB-DYYB
     Dosage: 700 MG, EVERY 0,6 WEEKS, THEN EVERY 8 WEEKS
     Route: 042
     Dates: start: 20180212
  4. INFLECTRA [Suspect]
     Active Substance: INFLIXIMAB-DYYB
     Dosage: 700 MG, EVERY 0, 6 WEEKS, THEN EVERY 8 WEEKS
     Route: 042
     Dates: start: 20181002
  5. HYDROCORTISONE. [Concomitant]
     Active Substance: HYDROCORTISONE
     Dosage: 10 MG, UNK
     Route: 042
     Dates: start: 20180802
  6. ELIQUIS [Concomitant]
     Active Substance: APIXABAN
     Dosage: 5 MG, 2X/DAY
     Route: 065
     Dates: start: 2019
  7. INFLECTRA [Suspect]
     Active Substance: INFLIXIMAB-DYYB
     Dosage: 700 MG, EVERY 0, 6 WEEKS, THEN EVERY 8 WEEKS
     Route: 042
     Dates: start: 20190328
  8. INFLECTRA [Suspect]
     Active Substance: INFLIXIMAB-DYYB
     Dosage: 700 MG, EVERY 0, 6 WEEKS, THEN EVERY 8 WEEKS
     Route: 042
     Dates: start: 20200107
  9. INFLECTRA [Suspect]
     Active Substance: INFLIXIMAB-DYYB
     Indication: COLITIS ULCERATIVE
     Dosage: 700 MG, Q 0.2,6 WEEKS, THEN EVERY 8 WEEKS FOR 24 MONTHS
     Route: 042
     Dates: start: 20170425, end: 20170731
  10. INFLECTRA [Suspect]
     Active Substance: INFLIXIMAB-DYYB
     Dosage: 700 MG, EVERY 0, 6 WEEKS, THEN EVERY 8 WEEKS
     Route: 042
     Dates: start: 20180412
  11. INFLECTRA [Suspect]
     Active Substance: INFLIXIMAB-DYYB
     Dosage: 700 MG, EVERY 0, 6 WEEKS, THEN EVERY 8 WEEKS
     Route: 042
     Dates: start: 20190131
  12. INFLECTRA [Suspect]
     Active Substance: INFLIXIMAB-DYYB
     Dosage: 700 MG, EVERY 0, 6 WEEKS, THEN EVERY 8 WEEKS
     Route: 042
     Dates: start: 20190523
  13. BISOPROLOL [Concomitant]
     Active Substance: BISOPROLOL
     Dosage: 5 MG, 2X/DAY
     Route: 065
  14. INFLECTRA [Suspect]
     Active Substance: INFLIXIMAB-DYYB
     Dosage: 700 MG, EVERY 0, 6 WEEKS, THEN EVERY 8 WEEKS
     Route: 042
     Dates: start: 20181129
  15. INFLECTRA [Suspect]
     Active Substance: INFLIXIMAB-DYYB
     Dosage: 700 MG, (STARTED OVER) ON WEEKS 0,6 AND EVERY 8 WEEKS
     Route: 065
  16. INFLECTRA [Suspect]
     Active Substance: INFLIXIMAB-DYYB
     Dosage: 700 MG, EVERY 0,6 WEEKS, THEN EVERY 8 WEEKS
     Route: 042
     Dates: start: 20171218
  17. HYDROCORTISONE. [Concomitant]
     Active Substance: HYDROCORTISONE
     Indication: PROPHYLAXIS
     Dosage: 100 MG, UNK
     Route: 042
  18. BISOPROLOL [Concomitant]
     Active Substance: BISOPROLOL
     Dosage: 1.25 MG, 1X/DAY FOR 3 DAYS PRE AND POST TREATMENT
     Route: 065
     Dates: start: 2018
  19. INFLECTRA [Suspect]
     Active Substance: INFLIXIMAB-DYYB
     Dosage: 700 MG, EVERY 0, 6 WEEKS, THEN EVERY 8 WEEKS
     Route: 042
     Dates: start: 20171107
  20. INFLECTRA [Suspect]
     Active Substance: INFLIXIMAB-DYYB
     Dosage: 700 MG, EVERY 0, 6 WEEKS, THEN EVERY 8 WEEKS
     Route: 042
     Dates: start: 20180607
  21. INFLECTRA [Suspect]
     Active Substance: INFLIXIMAB-DYYB
     Dosage: 700 MG, EVERY 0, 6 WEEKS, THEN EVERY 8 WEEKS
     Route: 042
     Dates: start: 20190912
  22. INFLECTRA [Suspect]
     Active Substance: INFLIXIMAB-DYYB
     Dosage: 700 MG, EVERY 0, 6 WEEKS, THEN EVERY 8 WEEKS
     Route: 042
     Dates: start: 20191106

REACTIONS (24)
  - Dizziness [Not Recovered/Not Resolved]
  - Fatigue [Not Recovered/Not Resolved]
  - Hypoaesthesia [Recovering/Resolving]
  - Musculoskeletal pain [Not Recovered/Not Resolved]
  - Paraesthesia [Unknown]
  - Tissue rupture [Unknown]
  - Condition aggravated [Not Recovered/Not Resolved]
  - Palpitations [Not Recovered/Not Resolved]
  - Off label use [Unknown]
  - Asthenia [Unknown]
  - Cardiac disorder [Unknown]
  - Arrhythmia [Unknown]
  - Dyspnoea [Unknown]
  - Pallor [Recovered/Resolved]
  - Product use issue [Unknown]
  - Back pain [Not Recovered/Not Resolved]
  - Blood pressure fluctuation [Unknown]
  - Weight decreased [Unknown]
  - Insomnia [Unknown]
  - Heart rate irregular [Unknown]
  - Heart rate decreased [Not Recovered/Not Resolved]
  - Gastrointestinal disorder [Not Recovered/Not Resolved]
  - Hyperhidrosis [Recovered/Resolved]
  - Tachycardia [Unknown]

NARRATIVE: CASE EVENT DATE: 2017
